FAERS Safety Report 13539323 (Version 2)
Quarter: 2017Q2

REPORT INFORMATION
  Report Type: Spontaneous
  Country: CN (occurrence: CN)
  Receive Date: 20170512
  Receipt Date: 20170518
  Transmission Date: 20170830
  Serious: Yes (Life-Threatening, Other)
  Sender: FDA-Public Use
  Company Number: CN-SUN PHARMACEUTICAL INDUSTRIES LTD-2017RR-139966

PATIENT
  Age: 92 Year
  Sex: Female

DRUGS (2)
  1. ANASTROZOL [Suspect]
     Active Substance: ANASTROZOLE
     Indication: INVASIVE DUCTAL BREAST CARCINOMA
     Dosage: 1 G, DAILY
     Route: 065
  2. CAPECITABINE. [Suspect]
     Active Substance: CAPECITABINE
     Indication: BREAST CANCER
     Dosage: LOW DOSE; 500 MG, TID DAILY; {30 MINUTES AFTER MEALS FOR 21 DAYS, 12 CYCLES WERE ADMINISTERED
     Route: 065

REACTIONS (5)
  - Drug ineffective [Unknown]
  - Fatigue [Unknown]
  - Therapeutic response decreased [Unknown]
  - Decreased appetite [Unknown]
  - Diarrhoea [Unknown]
